FAERS Safety Report 8810799 (Version 1)
Quarter: 2012Q4

REPORT INFORMATION
  Report Type: 
  Country: BR (occurrence: BR)
  Receive Date: 20120927
  Receipt Date: 20120927
  Transmission Date: 20130627
  Serious: Yes (Other)
  Sender: FDA-Public Use
  Company Number: BR-SANOFI-AVENTIS-2012SA068487

PATIENT
  Age: 57 Year
  Sex: Male
  Weight: 68 kg

DRUGS (4)
  1. LANTUS [Suspect]
     Indication: TYPE 2 DIABETES MELLITUS
     Route: 065
     Dates: start: 20120914
  2. APIDRA [Concomitant]
     Dosage: before lunch
     Dates: start: 20120915
  3. ENALAPRIL [Concomitant]
     Indication: HYPERTENSION
     Dates: start: 2004
  4. METFORMIN [Concomitant]
     Indication: TYPE II DIABETES MELLITUS
     Dates: start: 2004

REACTIONS (3)
  - Anal haemorrhage [Recovered/Resolved]
  - Abdominal pain upper [Recovering/Resolving]
  - Dizziness [Recovering/Resolving]
